FAERS Safety Report 7401357-X (Version None)
Quarter: 2011Q2

REPORT INFORMATION
  Report Type: 
  Country: None (occurrence: None)
  Receive Date: 20110407
  Receipt Date: 20110323
  Transmission Date: 20111010
  Serious: Yes (Other)
  Sender: FDA-Public Use
  Company Number: MX-GENENTECH-316022

PATIENT
  Age: 40 Year
  Sex: Male

DRUGS (1)
  1. XOLAIR [Suspect]
     Indication: ASTHMA
     Dosage: 750 MG, Q2W
     Dates: start: 20090101

REACTIONS (1)
  - EOSINOPHIL COUNT INCREASED [None]
